FAERS Safety Report 8927000 (Version 1)
Quarter: 2012Q4

REPORT INFORMATION
  Report Type: 
  Country: US (occurrence: US)
  Receive Date: 20121127
  Receipt Date: 20121127
  Transmission Date: 20130627
  Serious: No
  Sender: FDA-Public Use
  Company Number: US-BAYER-2012-123339

PATIENT
  Age: 63 Year
  Sex: Female
  Weight: 64 kg

DRUGS (3)
  1. ALEVE CAPLET/TABLET,MIDOL EXTENDED RELIEF CAPLET [Suspect]
     Indication: GENERAL BODY PAIN
     Dosage: UNK
     Route: 048
     Dates: start: 201210, end: 201211
  2. ARIMIDEX [Concomitant]
  3. SERTRALINE [Concomitant]

REACTIONS (4)
  - Joint swelling [None]
  - Contusion [None]
  - Joint swelling [Not Recovered/Not Resolved]
  - Contusion [Not Recovered/Not Resolved]
